FAERS Safety Report 10151800 (Version 1)
Quarter: 2014Q2

REPORT INFORMATION
  Report Type: Spontaneous
  Country: US (occurrence: US)
  Receive Date: 20140505
  Receipt Date: 20140505
  Transmission Date: 20141212
  Serious: Yes (Other)
  Sender: FDA-Public Use
  Company Number: US-BRISTOL-MYERS SQUIBB COMPANY-20700605

PATIENT
  Age: 68 Year
  Sex: Male
  Weight: 81.63 kg

DRUGS (1)
  1. BYETTA [Suspect]

REACTIONS (1)
  - Prostate cancer [Unknown]
